FAERS Safety Report 20061682 (Version 1)
Quarter: 2021Q4

REPORT INFORMATION
  Report Type: Report from Study
  Country: US (occurrence: US)
  Receive Date: 20211112
  Receipt Date: 20211112
  Transmission Date: 20220303
  Serious: Yes (Other)
  Sender: FDA-Public Use
  Company Number: US-NOVARTISPH-NVSC2021US253307

PATIENT
  Sex: Male

DRUGS (1)
  1. ENTRESTO [Suspect]
     Active Substance: SACUBITRIL\VALSARTAN
     Indication: Product used for unknown indication
     Dosage: 1 DF, BID (49/51 MG) (IN MORNING AND EVENING)
     Route: 048

REACTIONS (12)
  - COVID-19 pneumonia [Unknown]
  - Cardiac failure chronic [Unknown]
  - Memory impairment [Unknown]
  - Dizziness [Unknown]
  - Influenza like illness [Unknown]
  - Pain [Unknown]
  - Vomiting [Unknown]
  - Diarrhoea [Unknown]
  - Chronic obstructive pulmonary disease [Unknown]
  - Eye disorder [Unknown]
  - Anosmia [Unknown]
  - Product dose omission issue [Unknown]
